FAERS Safety Report 18724108 (Version 1)
Quarter: 2021Q1

REPORT INFORMATION
  Report Type: Spontaneous
  Country: US (occurrence: US)
  Receive Date: 20210107
  Receipt Date: 20210107
  Transmission Date: 20210419
  Serious: No
  Sender: FDA-Public Use
  Company Number: None

PATIENT
  Age: 72 Year
  Sex: Female

DRUGS (1)
  1. TAFINLAR [Suspect]
     Active Substance: DABRAFENIB MESYLATE
     Route: 048
     Dates: start: 202005

REACTIONS (6)
  - Thrombosis [None]
  - Pain [None]
  - Constipation [None]
  - Mass [None]
  - Tenderness [None]
  - Abdominal pain upper [None]

NARRATIVE: CASE EVENT DATE: 20201207
